FAERS Safety Report 4682043-6 (Version None)
Quarter: 2005Q2

REPORT INFORMATION
  Report Type: 
  Country: None (occurrence: None)
  Receive Date: 20050602
  Receipt Date: 20050519
  Transmission Date: 20051028
  Serious: Yes (Hospitalization)
  Sender: FDA-Public Use
  Company Number: B0381733A

PATIENT
  Age: 9 Year
  Sex: Female

DRUGS (1)
  1. ZOVIRAX [Suspect]

REACTIONS (9)
  - ATHETOSIS [None]
  - CEREBRAL ATROPHY [None]
  - CSF CELL COUNT INCREASED [None]
  - DISORIENTATION [None]
  - HYPERKINESIA [None]
  - ILL-DEFINED DISORDER [None]
  - NERVOUS SYSTEM DISORDER [None]
  - NUCLEAR MAGNETIC RESONANCE IMAGING BRAIN ABNORMAL [None]
  - RESTLESSNESS [None]
